FAERS Safety Report 7770516-9 (Version None)
Quarter: 2011Q3

REPORT INFORMATION
  Report Type: 
  Country: None (occurrence: None)
  Receive Date: 20110922
  Receipt Date: 20101019
  Transmission Date: 20111222
  Serious: No
  Sender: FDA-Public Use
  Company Number: US-ASTRAZENECA-2010SE49488

PATIENT
  Age: 37 Year
  Sex: Female

DRUGS (11)
  1. SEROQUEL XR [Suspect]
     Indication: DEPRESSION
     Route: 048
  2. WELLBUTRIN SR [Concomitant]
     Indication: BIPOLAR DISORDER
  3. WELLBUTRIN SR [Concomitant]
     Indication: POST-TRAUMATIC STRESS DISORDER
  4. SEROQUEL XR [Suspect]
     Indication: MANIA
     Route: 048
  5. CLONOPIN [Concomitant]
     Indication: BIPOLAR DISORDER
  6. CLONOPIN [Concomitant]
     Indication: POST-TRAUMATIC STRESS DISORDER
  7. LAMICTAL [Concomitant]
     Indication: MOOD SWINGS
  8. SEROQUEL XR [Suspect]
     Indication: SOMNOLENCE
     Route: 048
  9. CELEXA [Concomitant]
     Indication: POST-TRAUMATIC STRESS DISORDER
  10. SEROQUEL XR [Suspect]
     Indication: BIPOLAR DISORDER
     Route: 048
  11. CELEXA [Concomitant]
     Indication: BIPOLAR DISORDER

REACTIONS (2)
  - ANGER [None]
  - DRUG DOSE OMISSION [None]
